FAERS Safety Report 18111135 (Version 2)
Quarter: 2021Q1

REPORT INFORMATION
  Report Type: Spontaneous
  Country: US (occurrence: US)
  Receive Date: 20200804
  Receipt Date: 20210125
  Transmission Date: 20210419
  Serious: No
  Sender: FDA-Public Use
  Company Number: US-TAKEDA-2020TUS033252

PATIENT
  Age: 50 Year
  Sex: Male
  Weight: 95.24 kg

DRUGS (1)
  1. NINLARO [Suspect]
     Active Substance: IXAZOMIB CITRATE
     Indication: PLASMA CELL MYELOMA
     Dosage: 4 MILLIGRAM
     Route: 048
     Dates: start: 20200504

REACTIONS (2)
  - Vomiting [Unknown]
  - Dry skin [Unknown]

NARRATIVE: CASE EVENT DATE: 20200707
